FAERS Safety Report 6455802-7 (Version None)
Quarter: 2009Q4

REPORT INFORMATION
  Report Type: 
  Country: None (occurrence: None)
  Receive Date: 20091125
  Receipt Date: 20091104
  Transmission Date: 20100525
  Serious: No
  Sender: FDA-Public Use
  Company Number: US-ABBOTT-09P-163-0607265-00

PATIENT
  Sex: Female
  Weight: 72.186 kg

DRUGS (5)
  1. SIMCOR [Suspect]
     Indication: BLOOD CHOLESTEROL INCREASED
     Route: 048
     Dates: start: 20090801
  2. LYRICA [Concomitant]
     Indication: PERIPHERAL NERVE INJURY
     Route: 048
  3. TRAMADOL HCL [Concomitant]
     Indication: PERIPHERAL NERVE INJURY
     Route: 048
  4. COZAAR [Concomitant]
     Indication: HYPERTENSION
     Route: 048
  5. TRAZODONE HCL [Concomitant]
     Indication: INSOMNIA
     Route: 048

REACTIONS (2)
  - DRUG TOLERANCE DECREASED [None]
  - HOT FLUSH [None]
